FAERS Safety Report 18217686 (Version 1)
Quarter: 2020Q3

REPORT INFORMATION
  Report Type: Spontaneous
  Country: US (occurrence: US)
  Receive Date: 20200901
  Receipt Date: 20200901
  Transmission Date: 20201103
  Serious: Yes (Life-Threatening, Hospitalization)
  Sender: FDA-Public Use
  Company Number: US-MYLANLABS-2020M1075505

PATIENT
  Age: 21 Year
  Sex: Female

DRUGS (4)
  1. PROPOFOL. [Suspect]
     Active Substance: PROPOFOL
     Indication: SEDATIVE THERAPY
  2. PROPOFOL. [Suspect]
     Active Substance: PROPOFOL
     Indication: SEROTONIN SYNDROME
     Dosage: 50 MICROGRAM/KILOGRAM, QMINUTE
     Route: 042
  3. LORAZEPAM. [Suspect]
     Active Substance: LORAZEPAM
     Indication: SEROTONIN SYNDROME
     Dosage: 4 MG INTRAVENOUS LORAZEPAM
     Route: 042
  4. LORAZEPAM. [Suspect]
     Active Substance: LORAZEPAM
     Dosage: OVER THE COURSE OF 20 MIN, ANOTHER 9 MG OF IV LORAZEPAM WAS GIVEN
     Route: 042

REACTIONS (1)
  - Drug ineffective [Unknown]
